FAERS Safety Report 6637657-0 (Version None)
Quarter: 2010Q1

REPORT INFORMATION
  Report Type: 
  Country: None (occurrence: None)
  Receive Date: 20100301
  Receipt Date: 20091007
  Transmission Date: 20100710
  Serious: Yes (Hospitalization)
  Sender: FDA-Public Use
  Company Number: RB-21279-2009

PATIENT
  Age: 24 Year
  Sex: Female

DRUGS (5)
  1. SUBOXONE [Suspect]
     Indication: DRUG DEPENDENCE
     Dosage: 24 MG SUBLINGUAL;24 MG SUBLINGUAL;24 MG SUBLINGUAL;16 MG SUBLINGUAL
     Route: 060
     Dates: start: 20090606, end: 20090623
  2. SUBOXONE [Suspect]
     Indication: DRUG DEPENDENCE
     Dosage: 24 MG SUBLINGUAL;24 MG SUBLINGUAL;24 MG SUBLINGUAL;16 MG SUBLINGUAL
     Route: 060
     Dates: start: 20090703, end: 20090709
  3. SUBOXONE [Suspect]
     Indication: DRUG DEPENDENCE
     Dosage: 24 MG SUBLINGUAL;24 MG SUBLINGUAL;24 MG SUBLINGUAL;16 MG SUBLINGUAL
     Route: 060
     Dates: start: 20090719, end: 20090921
  4. SUBOXONE [Suspect]
     Indication: DRUG DEPENDENCE
     Dosage: 24 MG SUBLINGUAL;24 MG SUBLINGUAL;24 MG SUBLINGUAL;16 MG SUBLINGUAL
     Route: 060
     Dates: start: 20090922
  5. DILANTIN [Concomitant]

REACTIONS (2)
  - PELVIC PAIN [None]
  - TOOTH INFECTION [None]
